FAERS Safety Report 9798273 (Version 1)
Quarter: 2014Q1

REPORT INFORMATION
  Report Type: Spontaneous
  Country: CO (occurrence: CO)
  Receive Date: 20140106
  Receipt Date: 20140106
  Transmission Date: 20141002
  Serious: Yes (Death)
  Sender: FDA-Public Use
  Company Number: CO-ELI_LILLY_AND_COMPANY-CO201312009290

PATIENT
  Age: 63 Year
  Sex: Female

DRUGS (4)
  1. HUMALOG [Suspect]
     Indication: TYPE 2 DIABETES MELLITUS
     Dosage: 36 IU, QD
     Route: 058
  2. LANTUS [Concomitant]
  3. LOSARTAN [Concomitant]
  4. LOVASTATIN [Concomitant]

REACTIONS (4)
  - Cardiac arrest [Fatal]
  - Chest pain [Unknown]
  - Choking sensation [Unknown]
  - Blood glucose increased [Unknown]
